FAERS Safety Report 20603208 (Version 1)
Quarter: 2022Q1

REPORT INFORMATION
  Report Type: Spontaneous
  Country: US (occurrence: None)
  Receive Date: 20220316
  Receipt Date: 20220316
  Transmission Date: 20220423
  Serious: Yes (Hospitalization)
  Sender: FDA-Public Use
  Company Number: 2022A109888

PATIENT
  Age: 76 Year
  Sex: Male
  Weight: 78.9 kg

DRUGS (6)
  1. DURVALUMAB [Suspect]
     Active Substance: DURVALUMAB
     Indication: Non-small cell lung cancer
     Dosage: 780.0MG ONCE/SINGLE ADMINISTRATION
     Route: 042
     Dates: start: 20180822, end: 20180822
  2. CLOSTRIDIUM DIFFICILE VACCINE [Concomitant]
     Indication: Clostridium difficile immunisation
     Route: 065
     Dates: start: 20180327, end: 20180413
  3. OXYCODONE [Concomitant]
     Active Substance: OXYCODONE
  4. ASCORBIC ACID [Concomitant]
     Active Substance: ASCORBIC ACID
  5. FINASTERIDE [Concomitant]
     Active Substance: FINASTERIDE
  6. IBUPROFEN [Concomitant]
     Active Substance: IBUPROFEN

REACTIONS (1)
  - Dyspnoea [Recovered/Resolved]

NARRATIVE: CASE EVENT DATE: 20180822
